FAERS Safety Report 14284072 (Version 1)
Quarter: 2017Q4

REPORT INFORMATION
  Report Type: Report from Study
  Country: CA (occurrence: CA)
  Receive Date: 20171214
  Receipt Date: 20171214
  Transmission Date: 20180321
  Serious: Yes (Death, Other)
  Sender: FDA-Public Use
  Company Number: CA-AMGEN-CANSL2017184060

PATIENT
  Age: 48 Year
  Sex: Female

DRUGS (1)
  1. XGEVA [Suspect]
     Active Substance: DENOSUMAB
     Indication: BREAST CANCER
     Dosage: 120 MG/1.6 ML, UNK
     Route: 065
     Dates: start: 20160418

REACTIONS (1)
  - Death [Fatal]

NARRATIVE: CASE EVENT DATE: 20170922
